FAERS Safety Report 14219999 (Version 1)
Quarter: 2017Q4

REPORT INFORMATION
  Report Type: Spontaneous
  Country: US (occurrence: US)
  Receive Date: 20171123
  Receipt Date: 20171123
  Transmission Date: 20180321
  Serious: No
  Sender: FDA-Public Use
  Company Number: US-JNJFOC-20170912408

PATIENT
  Age: 57 Year
  Sex: Female
  Weight: 55.34 kg

DRUGS (2)
  1. RISPERDAL CONSTA [Suspect]
     Active Substance: RISPERIDONE
     Indication: SCHIZOPHRENIA
     Route: 030
     Dates: start: 20170811, end: 20170911
  2. RISPERDAL CONSTA [Suspect]
     Active Substance: RISPERIDONE
     Indication: SCHIZOPHRENIA
     Route: 030

REACTIONS (5)
  - Drug dose omission [Unknown]
  - Weight increased [Recovering/Resolving]
  - Syringe issue [Unknown]
  - Product packaging issue [Unknown]
  - Device leakage [Unknown]

NARRATIVE: CASE EVENT DATE: 2014
